FAERS Safety Report 6812342 (Version 11)
Quarter: 2012Q4

REPORT INFORMATION
  Report Type: Report from Study
  Country: US (occurrence: US)
  Receive Date: 20081114
  Receipt Date: 20121205
  Transmission Date: 20130627
  Serious: Yes (Other)
  Sender: FDA-Public Use
  Company Number: US-BIOGENIDEC-2008BI029528

PATIENT
  Age: 51 Year
  Sex: Female

DRUGS (11)
  1. TYSABRI [Suspect]
     Indication: MULTIPLE SCLEROSIS
     Route: 042
     Dates: start: 20080421, end: 20090415
  2. LEXAPRO [Concomitant]
     Indication: DEPRESSION
  3. TEGRETOL [Concomitant]
     Indication: NEURALGIA
  4. KLONIPIN [Concomitant]
     Indication: RESTLESS LEGS SYNDROME
  5. LYRICA [Concomitant]
  6. ADVIL [Concomitant]
  7. AMANTADINE [Concomitant]
  8. EXCEDRIN [Concomitant]
  9. MIRAPEX [Concomitant]
  10. MOBIC [Concomitant]
  11. JANUVIA [Concomitant]

REACTIONS (1)
  - Chronic lymphocytic leukaemia [Not Recovered/Not Resolved]
